FAERS Safety Report 5726125-6 (Version None)
Quarter: 2008Q2

REPORT INFORMATION
  Report Type: 
  Country: None (occurrence: None)
  Receive Date: 20080501
  Receipt Date: 20080501
  Transmission Date: 20081010
  Serious: Yes (Other)
  Sender: FDA-Public Use
  Company Number: None

PATIENT
  Age: 32 Year
  Sex: Male
  Weight: 40.8237 kg

DRUGS (3)
  1. DIGITEK  0.125 MG   ACTAVIS TOTOWA [Suspect]
     Indication: CARDIAC DISORDER
     Dosage: 1  DAILY  PO
     Route: 048
  2. SODIUM POLYSTYRENE SULFONATE [Concomitant]
  3. LANOXIN [Concomitant]

REACTIONS (8)
  - ANXIETY [None]
  - BLOOD POTASSIUM ABNORMAL [None]
  - BODY TEMPERATURE INCREASED [None]
  - CARDIOACTIVE DRUG LEVEL INCREASED [None]
  - FATIGUE [None]
  - HEART RATE INCREASED [None]
  - PHARMACEUTICAL PRODUCT COMPLAINT [None]
  - RENAL IMPAIRMENT [None]
